FAERS Safety Report 6490984-2 (Version None)
Quarter: 2009Q4

REPORT INFORMATION
  Report Type: 
  Country: None (occurrence: None)
  Receive Date: 20091211
  Receipt Date: 20091130
  Transmission Date: 20100525
  Serious: Yes (Life-Threatening, Other)
  Sender: FDA-Public Use
  Company Number: JP-ROCHE-664804

PATIENT
  Sex: Male
  Weight: 66 kg

DRUGS (14)
  1. AVASTIN [Suspect]
     Indication: RECTAL CANCER RECURRENT
     Route: 041
     Dates: start: 20081110, end: 20090427
  2. AVASTIN [Suspect]
     Dosage: DISCONTINUED.
     Route: 041
     Dates: start: 20090803, end: 20090928
  3. ELPLAT [Concomitant]
     Route: 041
     Dates: start: 20081110, end: 20090101
  4. ELPLAT [Concomitant]
     Route: 041
     Dates: start: 20090608, end: 20090706
  5. ELPLAT [Concomitant]
     Route: 041
     Dates: start: 20090101, end: 20090928
  6. FLUOROURACIL [Concomitant]
     Route: 040
     Dates: start: 20081110, end: 20090101
  7. FLUOROURACIL [Concomitant]
     Route: 040
     Dates: start: 20090608, end: 20090706
  8. FLUOROURACIL [Concomitant]
     Route: 040
     Dates: start: 20090101, end: 20090928
  9. FLUOROURACIL [Concomitant]
     Route: 041
     Dates: start: 20081110, end: 20090101
  10. FLUOROURACIL [Concomitant]
     Route: 041
     Dates: start: 20090608, end: 20090701
  11. FLUOROURACIL [Concomitant]
     Route: 041
     Dates: start: 20090101, end: 20090901
  12. ISOVORIN [Concomitant]
     Route: 041
     Dates: start: 20081110, end: 20090101
  13. ISOVORIN [Concomitant]
     Route: 041
     Dates: start: 20090608, end: 20090706
  14. ISOVORIN [Concomitant]
     Route: 041
     Dates: start: 20090101, end: 20090928

REACTIONS (4)
  - ANEURYSM RUPTURED [None]
  - GASTROINTESTINAL HAEMORRHAGE [None]
  - PELVIC ABSCESS [None]
  - SMALL INTESTINAL PERFORATION [None]
